FAERS Safety Report 24394759 (Version 1)
Quarter: 2024Q4

REPORT INFORMATION
  Report Type: Spontaneous
  Country: US (occurrence: US)
  Receive Date: 20241004
  Receipt Date: 20241004
  Transmission Date: 20250114
  Serious: No
  Sender: SANOFI AVENTIS
  Company Number: US-SA-2024SA283438

PATIENT
  Age: 42 Year
  Sex: Female

DRUGS (1)
  1. DUPIXENT [Suspect]
     Active Substance: DUPILUMAB
     Indication: Dermatitis atopic
     Dosage: 300 MG, BIM
     Route: 058
     Dates: start: 20220925

REACTIONS (6)
  - Eyelid exfoliation [Unknown]
  - Swelling of eyelid [Unknown]
  - Erythema [Unknown]
  - Skin burning sensation [Unknown]
  - Condition aggravated [Unknown]
  - Eye pruritus [Unknown]

NARRATIVE: CASE EVENT DATE: 20240909
